FAERS Safety Report 23382293 (Version 3)
Quarter: 2024Q2

REPORT INFORMATION
  Report Type: Report from Study
  Country: AT (occurrence: AT)
  Receive Date: 20240109
  Receipt Date: 20240604
  Transmission Date: 20240716
  Serious: Yes (Hospitalization)
  Sender: FDA-Public Use
  Company Number: AT-BAXTER-2024BAX010138

PATIENT
  Age: 58 Year
  Sex: Female
  Weight: 61 kg

DRUGS (26)
  1. MESNA [Suspect]
     Active Substance: MESNA
     Indication: Urinary tract disorder prophylaxis
     Dosage: 400 MG, EVERY 3 WEEKS
     Route: 065
     Dates: start: 20231018
  2. MESNA [Suspect]
     Active Substance: MESNA
     Dosage: 1200 MG, EVERY 3 WEEKS
     Route: 065
     Dates: start: 20231018
  3. CYCLOPHOSPHAMIDE [Suspect]
     Active Substance: CYCLOPHOSPHAMIDE
     Indication: Diffuse large B-cell lymphoma stage IV
     Dosage: 1280 MG, 21-DAY CYCLES, EVERY 3 WEEKS
     Route: 042
     Dates: start: 20231018
  4. EPCORITAMAB [Suspect]
     Active Substance: EPCORITAMAB
     Indication: Diffuse large B-cell lymphoma stage IV
     Dosage: 48 MG C1 (STEP-UP), CYCLES 2-4 (21-DAY CYCLE, WEEKLY DOSE), EVERY 1 WEEKS
     Route: 058
     Dates: start: 20231018, end: 20231207
  5. EPCORITAMAB [Suspect]
     Active Substance: EPCORITAMAB
     Dosage: 48 MG C1 (STEP-UP), CYCLES 2-4 (21-DAY CYCLE, WEEKLY DOSE), EVERY 1 WEEKS, C5-8 (21 DAY CYCLE, EVERY
     Route: 058
     Dates: start: 20231221
  6. VINCRISTINE [Suspect]
     Active Substance: VINCRISTINE
     Indication: Diffuse large B-cell lymphoma stage IV
     Dosage: 2 MG, 21-DAY CYCLES, EVERY 3 WEEKS, ONGOING
     Route: 042
     Dates: start: 20231018
  7. RITUXIMAB [Suspect]
     Active Substance: RITUXIMAB
     Indication: Diffuse large B-cell lymphoma stage IV
     Dosage: 640 MG 21-DAY CYCLES, EVERY 3 WEEKS, ONGOING
     Route: 042
     Dates: start: 20231018
  8. DOXORUBICIN [Suspect]
     Active Substance: DOXORUBICIN
     Indication: Diffuse large B-cell lymphoma stage IV
     Dosage: 86 MG 21-DAY CYCLES, EVERY 3 WEEKS, ONGOING
     Route: 042
     Dates: start: 20231018
  9. PREDNISONE [Suspect]
     Active Substance: PREDNISONE
     Indication: Diffuse large B-cell lymphoma stage IV
     Dosage: 100 MG DAILY C1-6, DAY 1-5, EVERY 1 DAYS, ONGOING
     Route: 048
     Dates: start: 20231018
  10. VITAMIN D3 [Concomitant]
     Active Substance: CHOLECALCIFEROL
     Indication: Osteoporosis
     Dosage: 2000 IU, EVERY 1 DAYS (START DATE: 2015)
     Route: 065
  11. Novalgin [Concomitant]
     Indication: Cancer pain
     Dosage: 30 DROPS, AS NECESSARY(START DATE: OCT-2023)
     Route: 065
  12. SULFAMETHOXAZOLE\TRIMETHOPRIM [Concomitant]
     Active Substance: SULFAMETHOXAZOLE\TRIMETHOPRIM
     Indication: Antifungal prophylaxis
     Dosage: 1 DOSAGE FORM, 3/WEEKS
     Route: 065
     Dates: start: 20231018
  13. VALACYCLOVIR HYDROCHLORIDE [Concomitant]
     Active Substance: VALACYCLOVIR HYDROCHLORIDE
     Indication: Antiviral prophylaxis
     Dosage: 500 MG, 2/DAYS
     Route: 065
     Dates: start: 20231018
  14. ZOFRAN [Concomitant]
     Active Substance: ONDANSETRON HYDROCHLORIDE
     Indication: Prophylaxis of nausea and vomiting
     Dosage: 8 MG, AS NECESSARY
     Route: 065
     Dates: start: 20231019, end: 20240204
  15. Paspertin [Concomitant]
     Indication: Prophylaxis of nausea and vomiting
     Dosage: 1 DOSAGE FORM, AS NECESSARY
     Route: 065
     Dates: start: 20231019
  16. LEVOCETIRIZINE DIHYDROCHLORIDE [Concomitant]
     Active Substance: LEVOCETIRIZINE DIHYDROCHLORIDE
     Indication: Antiallergic therapy
     Dosage: 5 MG, EVERY 1 WEEKS
     Route: 065
     Dates: start: 20231018
  17. ACETAMINOPHEN [Concomitant]
     Active Substance: ACETAMINOPHEN
     Indication: Antipyresis
     Dosage: 1000 MG, EVERY 1 WEEKS
     Route: 065
     Dates: start: 20231018
  18. LIPEGFILGRASTIM [Concomitant]
     Active Substance: LIPEGFILGRASTIM
     Indication: Prophylaxis
     Dosage: 6 MG, EVERY 3 WEEKS
     Route: 065
     Dates: start: 20231020, end: 20240222
  19. FOLIC ACID [Concomitant]
     Active Substance: FOLIC ACID
     Indication: Folate deficiency
     Dosage: 5 MG, EVERY 1 WEEKS
     Route: 065
     Dates: start: 20231110
  20. PANTOPRAZOLE SODIUM [Concomitant]
     Active Substance: PANTOPRAZOLE SODIUM
     Indication: Gastritis prophylaxis
     Dosage: 20 MG, EVERY 1 DAYS
     Route: 065
     Dates: start: 20231123
  21. CALCIUM D3 STADA [Concomitant]
     Indication: Osteoporosis
     Dosage: 1 DOSAGE FORM, 2/DAYS
     Route: 065
     Dates: start: 20231201
  22. IBANDRONATE SODIUM [Concomitant]
     Active Substance: IBANDRONATE SODIUM
     Indication: Osteoporosis
     Dosage: 6 MG, AS NECESSARY
     Route: 065
     Dates: start: 20231207
  23. ALLOPURINOL G.L. [Concomitant]
     Indication: Prophylaxis
     Dosage: 300 MG, EVERY 1 DAYS
     Route: 065
     Dates: start: 20231013, end: 20231122
  24. ALLOPURINOL G.L. [Concomitant]
     Dosage: 150 MG, EVERY 1 DAYS
     Route: 065
     Dates: start: 20231123, end: 20231130
  25. ENOXAPARIN SODIUM [Concomitant]
     Active Substance: ENOXAPARIN SODIUM
     Indication: Thrombosis prophylaxis
     Dosage: 4000 IU, EVERY 1 DAYS
     Route: 065
     Dates: start: 20231018
  26. DEXAMETHASONE [Concomitant]
     Active Substance: DEXAMETHASONE
     Indication: Prophylaxis
     Dosage: 16 MG, AS NECESSARY
     Route: 065
     Dates: start: 20231025

REACTIONS (1)
  - C-reactive protein increased [Recovered/Resolved]

NARRATIVE: CASE EVENT DATE: 20231214
